FAERS Safety Report 18000702 (Version 2)
Quarter: 2020Q3

REPORT INFORMATION
  Report Type: Report from Study
  Country: US (occurrence: US)
  Receive Date: 20200709
  Receipt Date: 20200805
  Transmission Date: 20201103
  Serious: No
  Sender: FDA-Public Use
  Company Number: US-SA-2020SA176188

PATIENT

DRUGS (1)
  1. DUPILUMAB [Suspect]
     Active Substance: DUPILUMAB
     Indication: NASAL POLYPS

REACTIONS (4)
  - Nasal polypectomy [Unknown]
  - Rhinorrhoea [Unknown]
  - Nasal congestion [Unknown]
  - Upper-airway cough syndrome [Unknown]
